FAERS Safety Report 16022640 (Version 1)
Quarter: 2019Q1

REPORT INFORMATION
  Report Type: Spontaneous
  Country: US (occurrence: US)
  Receive Date: 20190301
  Receipt Date: 20190301
  Transmission Date: 20190418
  Serious: Yes (Hospitalization)
  Sender: FDA-Public Use
  Company Number: PHEH2019US008195

PATIENT
  Sex: Female
  Weight: 91.63 kg

DRUGS (19)
  1. CORGARD [Suspect]
     Active Substance: NADOLOL
     Indication: CARDIAC FAILURE CONGESTIVE
     Dosage: 60 MG, QD
     Route: 048
     Dates: start: 1989
  2. TRAMADOL. [Concomitant]
     Active Substance: TRAMADOL
     Indication: CROHN^S DISEASE
     Dosage: 50 MG, Q4H (AS NEEDED FOR PAIN)
     Route: 065
     Dates: start: 2016
  3. OXYGEN. [Concomitant]
     Active Substance: OXYGEN
     Indication: CARDIAC FAILURE CONGESTIVE
     Dosage: 3 L, CONT (BEEN ON FOR ABOUT A YEAR TO A YEAR AND A HALF)
     Route: 065
  4. EPIPEN [Concomitant]
     Active Substance: EPINEPHRINE
     Indication: HYPERSENSITIVITY
     Dosage: UNK
     Route: 065
     Dates: start: 2006
  5. FLOVENT [Concomitant]
     Active Substance: FLUTICASONE PROPIONATE
     Indication: DYSPNOEA
     Dosage: 110 UG, BID (TWO PUFFS A DAY)
     Route: 055
  6. PANTOPRAZOLE [Concomitant]
     Active Substance: PANTOPRAZOLE
     Indication: CROHN^S DISEASE
     Dosage: 40 MG, QD
     Route: 048
     Dates: start: 1990
  7. PHENERGAN [Concomitant]
     Active Substance: PROMETHAZINE HYDROCHLORIDE
     Indication: CROHN^S DISEASE
     Dosage: 25 MG, PRN
     Route: 065
     Dates: start: 1996
  8. VALTREX [Concomitant]
     Active Substance: VALACYCLOVIR HYDROCHLORIDE
     Indication: HERPES VIRUS INFECTION
     Dosage: 500 MG, QD (STARTED COUPLE OF YEARS AGO)
     Route: 065
  9. ASPIRIN. [Concomitant]
     Active Substance: ASPIRIN
     Indication: STENT PLACEMENT
     Dosage: 81 MG, QD
     Route: 065
  10. CYCLOBENZAPRINE. [Suspect]
     Active Substance: CYCLOBENZAPRINE
     Indication: MUSCLE SPASMS
     Dosage: 5 MG, PRN (ONE TO TWO AS NEEDED)
     Route: 065
     Dates: start: 2017
  11. SYNTHROID [Concomitant]
     Active Substance: LEVOTHYROXINE SODIUM
     Indication: THYROID DISORDER
     Dosage: 0.88 MG, QD
     Route: 048
     Dates: start: 1973
  12. ALLEGRA-D [Concomitant]
     Active Substance: FEXOFENADINE\PSEUDOEPHEDRINE
     Indication: SINUSITIS
     Dosage: 1 DF, QD
     Route: 048
     Dates: start: 2000
  13. ZOFRAN [Concomitant]
     Active Substance: ONDANSETRON HYDROCHLORIDE
     Indication: CROHN^S DISEASE
     Dosage: 4 MG, PRN
     Route: 065
  14. PHENERGAN [Concomitant]
     Active Substance: PROMETHAZINE HYDROCHLORIDE
     Dosage: 50 MG, PRN
     Route: 065
     Dates: start: 1996
  15. NADOLOL. [Suspect]
     Active Substance: NADOLOL
     Indication: CARDIAC FAILURE CONGESTIVE
     Route: 065
  16. FUROSEMIDE. [Concomitant]
     Active Substance: FUROSEMIDE
     Indication: FLUID RETENTION
     Dosage: 40 MG, PRN (20MG AND 40MG)
     Dates: start: 1973
  17. LAMITOL [Concomitant]
     Active Substance: LABETALOL HYDROCHLORIDE
     Indication: CROHN^S DISEASE
     Dosage: 2.5 MG, PRN (TAKING 2-4 TABLETS IF SHE LEAVES THE HOUSE)
     Route: 065
     Dates: start: 1990
  18. BUDESONIDE. [Concomitant]
     Active Substance: BUDESONIDE
     Indication: SINUSITIS
     Dosage: UNK (POWDER MIXED WITH DISTILLED WATER AND SQEEZES INTO HER SINUSES)
     Route: 065
  19. NITROGLYCERIN. [Concomitant]
     Active Substance: NITROGLYCERIN
     Indication: CHEST PAIN
     Dosage: 0.4 MG, PRN
     Route: 065
     Dates: start: 1990

REACTIONS (7)
  - General physical health deterioration [Recovered/Resolved]
  - Dizziness [Recovered/Resolved]
  - Feeling abnormal [Recovered/Resolved]
  - Drug effect delayed [Recovered/Resolved]
  - Blood pressure decreased [Recovered/Resolved]
  - Dyspnoea [Recovered/Resolved]
  - Product dispensing error [Recovered/Resolved]
